FAERS Safety Report 7383475-8 (Version None)
Quarter: 2011Q1

REPORT INFORMATION
  Report Type: 
  Country: None (occurrence: None)
  Receive Date: 20110328
  Receipt Date: 20110328
  Transmission Date: 20110831
  Serious: Yes (Other)
  Sender: FDA-Public Use
  Company Number: None

PATIENT
  Age: 57 Year
  Sex: Female
  Weight: 56.6996 kg

DRUGS (1)
  1. ZYCLARA [Suspect]
     Indication: SKIN CANCER
     Dosage: 1 PACKET PER NT FOR 14 DAYS TOP
     Route: 061
     Dates: start: 20110319, end: 20110322

REACTIONS (2)
  - EYELID OEDEMA [None]
  - SWELLING FACE [None]
